FAERS Safety Report 10360434 (Version 1)
Quarter: 2014Q3

REPORT INFORMATION
  Report Type: Spontaneous
  Country: TR (occurrence: TR)
  Receive Date: 20140804
  Receipt Date: 20140804
  Transmission Date: 20150326
  Serious: Yes (Other)
  Sender: FDA-Public Use
  Company Number: TR-TEVA-498384ISR

PATIENT
  Age: 10 Year
  Sex: Male
  Weight: 50 kg

DRUGS (5)
  1. PAROXETINE [Interacting]
     Active Substance: PAROXETINE\PAROXETINE HYDROCHLORIDE
     Dosage: 20 MILLIGRAM DAILY; 20 MG/DAY FOR PERIOD OF 6 MONTHS
     Route: 065
  2. PAROXETINE [Suspect]
     Active Substance: PAROXETINE\PAROXETINE HYDROCHLORIDE
     Indication: SOCIAL PHOBIA
     Dosage: 10 MILLIGRAM DAILY; 10 MG/DAY
     Route: 065
  3. METHYLPHENIDATE [Interacting]
     Active Substance: METHYLPHENIDATE
     Indication: ATTENTION DEFICIT/HYPERACTIVITY DISORDER
     Dosage: 18 MILLIGRAM DAILY; 18 MG/DAY FOR 2 MONTHS. CONTROLLED RELEASE.
     Route: 048
  4. METHYLPHENIDATE [Interacting]
     Active Substance: METHYLPHENIDATE
     Dosage: 36 MILLIGRAM DAILY; 36 MG/DAY FOR 1 YEAR. CONTROLLED RELEASE.
     Route: 048
  5. METHYLPHENIDATE [Interacting]
     Active Substance: METHYLPHENIDATE
     Dosage: 54 MILLIGRAM DAILY; 54 MG/DAY FOR PERIOD OF 6 MONTHS. CONTROLLED RELEASE.
     Route: 048

REACTIONS (2)
  - Drug interaction [Unknown]
  - Gynaecomastia [Not Recovered/Not Resolved]
